FAERS Safety Report 9717545 (Version 3)
Quarter: 2015Q3

REPORT INFORMATION
  Report Type: Spontaneous
  Country: US (occurrence: US)
  Receive Date: 20131127
  Receipt Date: 20150803
  Transmission Date: 20151125
  Serious: No
  Sender: FDA-Public Use
  Company Number: US-GILEAD-2009-0020542

PATIENT
  Age: 69 Year
  Sex: Female

DRUGS (9)
  1. IODINE [Concomitant]
     Active Substance: IODINE
  2. LETAIRIS [Suspect]
     Active Substance: AMBRISENTAN
     Indication: PULMONARY ARTERIAL HYPERTENSION
  3. CALCIUM [Concomitant]
     Active Substance: CALCIUM
  4. VITAMIN B COMPLEX [Concomitant]
     Active Substance: CYANOCOBALAMIN\DEXPANTHENOL\NIACINAMIDE\PYRIDOXINE HYDROCHLORIDE\RIBOFLAVIN 5^-PHOSPHATE SODIUM\THIAMINE HYDROCHLORIDE\VITAMIN B COMPLEX
  5. VITAMIN D [Concomitant]
     Active Substance: CHOLECALCIFEROL
  6. OMEGA 3 [Concomitant]
     Active Substance: OMEGA-3 FATTY ACIDS
  7. COQ10 [Concomitant]
     Active Substance: UBIDECARENONE
  8. LISINOPRIL. [Concomitant]
     Active Substance: LISINOPRIL
     Indication: STAPHYLOCOCCAL INFECTION
  9. ACTONEL [Concomitant]
     Active Substance: RISEDRONATE SODIUM

REACTIONS (3)
  - Acute sinusitis [Recovered/Resolved]
  - Bronchitis [Recovered/Resolved]
  - Staphylococcal infection [Recovered/Resolved]
